FAERS Safety Report 13067859 (Version 1)
Quarter: 2016Q4

REPORT INFORMATION
  Report Type: Spontaneous
  Country: US (occurrence: US)
  Receive Date: 20161227
  Receipt Date: 20161227
  Transmission Date: 20170207
  Serious: Yes (Other)
  Sender: FDA-Public Use
  Company Number: None

PATIENT
  Sex: Female

DRUGS (1)
  1. CAPECITABINE 500 MG ACCORD [Suspect]
     Active Substance: CAPECITABINE
     Indication: NEOPLASM MALIGNANT
     Dosage: 2500 MG DAILY (7 DAYS ON 7 DAYS    BY MOUTH
     Route: 048
     Dates: start: 20161111, end: 20161121

REACTIONS (3)
  - Dyspnoea [None]
  - Dysphagia [None]
  - Oesophageal disorder [None]
